FAERS Safety Report 19932039 (Version 1)
Quarter: 2021Q4

REPORT INFORMATION
  Report Type: Report from Study
  Country: None (occurrence: US)
  Receive Date: 20211007
  Receipt Date: 20211007
  Transmission Date: 20220303
  Serious: Yes (Other)
  Sender: FDA-Public Use
  Company Number: US-ABBVIE-21K-163-4110560-00

PATIENT
  Sex: Male

DRUGS (1)
  1. HUMIRA [Suspect]
     Active Substance: ADALIMUMAB
     Indication: Psoriasis
     Route: 058

REACTIONS (7)
  - Cardiac failure [Unknown]
  - Chronic hepatitis [Unknown]
  - Dementia [Unknown]
  - Depression [Unknown]
  - Skin disorder [Unknown]
  - Hypovitaminosis [Unknown]
  - Gastrooesophageal reflux disease [Unknown]
